FAERS Safety Report 12468598 (Version 1)
Quarter: 2016Q2

REPORT INFORMATION
  Report Type: Spontaneous
  Country: DK (occurrence: DK)
  Receive Date: 20160615
  Receipt Date: 20160615
  Transmission Date: 20160815
  Serious: Yes (Hospitalization)
  Sender: FDA-Public Use
  Company Number: PHHY2016DK079695

PATIENT
  Age: 79 Year
  Sex: Male

DRUGS (1)
  1. DICLON [Suspect]
     Active Substance: DICLOFENAC SODIUM
     Indication: NEPHROLITHIASIS
     Route: 065
     Dates: start: 20140707

REACTIONS (6)
  - Faeces discoloured [Unknown]
  - Exfoliative rash [Unknown]
  - Gastrointestinal ulcer haemorrhage [Unknown]
  - Dizziness [Unknown]
  - Renal impairment [Unknown]
  - Haemoglobin decreased [Unknown]

NARRATIVE: CASE EVENT DATE: 201407
